FAERS Safety Report 17725130 (Version 6)
Quarter: 2020Q3

REPORT INFORMATION
  Report Type: Report from Study
  Country: US (occurrence: US)
  Receive Date: 20200429
  Receipt Date: 20200827
  Transmission Date: 20201102
  Serious: No
  Sender: FDA-Public Use
  Company Number: NVSC2020US115379

PATIENT
  Sex: Female

DRUGS (2)
  1. COSENTYX [Suspect]
     Active Substance: SECUKINUMAB
     Indication: PSORIASIS
     Dosage: 300 MG, UNKNOWN
     Route: 065
  2. COSENTYX [Suspect]
     Active Substance: SECUKINUMAB
     Indication: PSORIATIC ARTHROPATHY

REACTIONS (8)
  - Diarrhoea [Not Recovered/Not Resolved]
  - Pruritus [Recovering/Resolving]
  - Oropharyngeal pain [Recovered/Resolved]
  - Sensitive skin [Recovering/Resolving]
  - Psoriasis [Recovering/Resolving]
  - Fatigue [Recovered/Resolved]
  - Drug ineffective [Recovering/Resolving]
  - Product dose omission issue [Recovering/Resolving]
